FAERS Safety Report 11700406 (Version 1)
Quarter: 2015Q4

REPORT INFORMATION
  Report Type: Spontaneous
  Country: JP (occurrence: JP)
  Receive Date: 20151105
  Receipt Date: 20151105
  Transmission Date: 20160304
  Serious: Yes (Hospitalization)
  Sender: FDA-Public Use
  Company Number: JP-009507513-1511JPN001078

PATIENT
  Age: 77 Year
  Sex: Male

DRUGS (2)
  1. ZOLINZA [Suspect]
     Active Substance: VORINOSTAT
     Indication: MYCOSIS FUNGOIDES
     Dosage: 300 MG, 5 CONSECUTIVE-DAY ADMINISTRATION AND 2 DAYS OFF
     Route: 048
     Dates: start: 20150914, end: 20151010
  2. ZOLINZA [Suspect]
     Active Substance: VORINOSTAT
     Dosage: 400 MG, QD
     Route: 048
     Dates: start: 20151010, end: 20151023

REACTIONS (1)
  - Subarachnoid haemorrhage [Unknown]

NARRATIVE: CASE EVENT DATE: 20151026
